FAERS Safety Report 16062870 (Version 1)
Quarter: 2019Q1

REPORT INFORMATION
  Report Type: Spontaneous
  Country: US (occurrence: US)
  Receive Date: 20190312
  Receipt Date: 20190312
  Transmission Date: 20190418
  Serious: Yes (Other)
  Sender: FDA-Public Use
  Company Number: US-PFIZER INC-2019105319

PATIENT
  Age: 15 Year
  Sex: Male

DRUGS (5)
  1. VINCRISTINE SULFATE. [Suspect]
     Active Substance: VINCRISTINE SULFATE
     Dosage: UNK, CYCLIC (4 CYCLES WITH ACTINOMYCIN)
  2. ACTINOMYCIN D [Suspect]
     Active Substance: DACTINOMYCIN
     Indication: EMBRYONAL RHABDOMYOSARCOMA
     Dosage: UNK, CYCLIC (4 CYCLES WITH VINCRISTINE AND CYCLOPHOSPHAMIDE)
  3. CYCLOPHOSPHAMIDE. [Suspect]
     Active Substance: CYCLOPHOSPHAMIDE
     Indication: EMBRYONAL RHABDOMYOSARCOMA
     Dosage: UNK, CYCLIC (4 CYCLES WITH VINCRISTINE AND ACTINOMYCIN)
  4. VINCRISTINE SULFATE. [Suspect]
     Active Substance: VINCRISTINE SULFATE
     Indication: EMBRYONAL RHABDOMYOSARCOMA
     Dosage: UNK, CYCLIC (4 CYCLES WITH ACTINOMYCIN, AND CYCLOPHOSPHAMIDE )
  5. ACTINOMYCIN D [Suspect]
     Active Substance: DACTINOMYCIN
     Dosage: UNK, CYCLIC (4 CYCLES WITH VINCRISTINE)

REACTIONS (2)
  - Retrograde ejaculation [Recovered/Resolved]
  - Neuropathy peripheral [Recovered/Resolved]
